FAERS Safety Report 16055828 (Version 1)
Quarter: 2019Q2

REPORT INFORMATION
  Report Type: Spontaneous
  Country: US (occurrence: US)
  Receive Date: 20190308
  Receipt Date: 20190308
  Transmission Date: 20190711
  Serious: No
  Sender: FDA-Public Use
  Company Number: None

PATIENT
  Age: 10 Year
  Sex: Male
  Weight: 34.65 kg

DRUGS (1)
  1. NO DRIP NASAL PUMP MIST OXYMETAZOLINE HYDROCHLORIDE 0.05% [Suspect]
     Active Substance: OXYMETAZOLINE HYDROCHLORIDE
     Indication: NASAL CONGESTION
     Dosage: ?          OTHER STRENGTH:SPRAYS;QUANTITY:2 SPRAY(S);?
     Route: 055
     Dates: start: 20190308, end: 20190308

REACTIONS (3)
  - Nasal discomfort [None]
  - Ear pain [None]
  - Screaming [None]

NARRATIVE: CASE EVENT DATE: 20190308
